FAERS Safety Report 10619190 (Version 1)
Quarter: 2014Q4

REPORT INFORMATION
  Report Type: Spontaneous
  Country: ES (occurrence: ES)
  Receive Date: 20141202
  Receipt Date: 20141202
  Transmission Date: 20150529
  Serious: Yes (Other)
  Sender: FDA-Public Use
  Company Number: ES-PFIZER INC-2014328061

PATIENT
  Sex: Female

DRUGS (2)
  1. LYRICA [Suspect]
     Active Substance: PREGABALIN
     Indication: NEURALGIA
     Dosage: 300 MG, 2X/DAY
     Route: 048
     Dates: start: 201409
  2. LYRICA [Suspect]
     Active Substance: PREGABALIN
     Dosage: 6 G, DAILY
     Route: 048
     Dates: start: 2014

REACTIONS (5)
  - Drug dependence [Unknown]
  - Fatigue [Unknown]
  - Hyperhidrosis [Unknown]
  - Drug abuse [Unknown]
  - Anxiety [Unknown]
